FAERS Safety Report 18393399 (Version 1)
Quarter: 2020Q4

REPORT INFORMATION
  Report Type: Spontaneous
  Country: JP (occurrence: JP)
  Receive Date: 20201016
  Receipt Date: 20201016
  Transmission Date: 20210114
  Serious: Yes (Death, Other)
  Sender: FDA-Public Use
  Company Number: JP-CELGENEUS-JPN-20200802405

PATIENT
  Age: 8 Decade
  Sex: Male

DRUGS (1)
  1. ISTODAX [Suspect]
     Active Substance: ROMIDEPSIN
     Indication: ANGIOIMMUNOBLASTIC T-CELL LYMPHOMA
     Route: 041
     Dates: start: 20200720, end: 2020

REACTIONS (2)
  - Neutropenia [Recovered/Resolved]
  - Angioimmunoblastic T-cell lymphoma [Fatal]

NARRATIVE: CASE EVENT DATE: 20200721
